FAERS Safety Report 6810031-X (Version None)
Quarter: 2010Q2

REPORT INFORMATION
  Report Type: 
  Country: None (occurrence: None)
  Receive Date: 20100630
  Receipt Date: 20100621
  Transmission Date: 20101027
  Serious: Yes (Other)
  Sender: FDA-Public Use
  Company Number: B0662896A

PATIENT
  Age: 48 Year
  Sex: Female

DRUGS (1)
  1. SEROXAT [Suspect]
     Indication: DEPRESSION
     Dosage: 20MG PER DAY
     Route: 048
     Dates: start: 20091001

REACTIONS (6)
  - DEPRESSION [None]
  - DISEASE RECURRENCE [None]
  - OPTIC ATROPHY [None]
  - PAIN [None]
  - RETINAL HAEMORRHAGE [None]
  - VISION BLURRED [None]
